FAERS Safety Report 9384438 (Version 2)
Quarter: 2013Q3

REPORT INFORMATION
  Report Type: Spontaneous
  Country: FR (occurrence: FR)
  Receive Date: 20130705
  Receipt Date: 20130814
  Transmission Date: 20140515
  Serious: Yes (Other)
  Sender: FDA-Public Use
  Company Number: FR-ASTRAZENECA-2013SE49807

PATIENT
  Age: 764 Month
  Sex: Female
  Weight: 53 kg

DRUGS (7)
  1. MOPRAL [Suspect]
     Indication: GASTROOESOPHAGEAL REFLUX DISEASE
     Route: 048
  2. MOPRAL [Suspect]
     Indication: GASTROOESOPHAGEAL REFLUX DISEASE
     Route: 048
     Dates: end: 20130711
  3. MOPRAL [Suspect]
     Indication: GASTROOESOPHAGEAL REFLUX DISEASE
     Route: 048
     Dates: start: 20130711, end: 20130719
  4. MOPRAL [Suspect]
     Indication: GASTROOESOPHAGEAL REFLUX DISEASE
     Route: 048
     Dates: start: 20130725
  5. ZOLPIDEM [Concomitant]
  6. VITAMINS [Concomitant]
  7. ALLOPURINOL [Concomitant]

REACTIONS (15)
  - Hypergastrinaemia [Unknown]
  - Malnutrition [Unknown]
  - Early satiety [Recovered/Resolved]
  - Hypoalbuminaemia [Unknown]
  - Undifferentiated sarcoma [Not Recovered/Not Resolved]
  - Barrett^s oesophagus [Unknown]
  - Barrett^s oesophagus [Unknown]
  - Emotional disorder [Unknown]
  - Nausea [Recovered/Resolved]
  - Vomiting [Recovered/Resolved]
  - Diarrhoea [Recovered/Resolved]
  - Flatulence [Recovered/Resolved]
  - Abdominal pain [Recovered/Resolved]
  - Gastrointestinal disorder [Recovered/Resolved]
  - Drug dose omission [Unknown]
